FAERS Safety Report 10612656 (Version 1)
Quarter: 2014Q4

REPORT INFORMATION
  Report Type: Spontaneous
  Country: US (occurrence: US)
  Receive Date: 20141127
  Receipt Date: 20141127
  Transmission Date: 20150529
  Serious: Yes (Other)
  Sender: FDA-Public Use
  Company Number: US-AMGEN-USASP2014090653

PATIENT
  Age: 73 Year
  Sex: Female

DRUGS (1)
  1. PROLIA [Suspect]
     Active Substance: DENOSUMAB
     Indication: OSTEOPOROSIS POSTMENOPAUSAL
     Route: 065

REACTIONS (8)
  - Ear infection [Unknown]
  - Bone swelling [Unknown]
  - Swelling [Unknown]
  - Muscle spasms [Unknown]
  - Lymphadenopathy [Unknown]
  - Sinusitis [Unknown]
  - Jaw disorder [Unknown]
  - Bone pain [Unknown]

NARRATIVE: CASE EVENT DATE: 2013
